FAERS Safety Report 5376571-8 (Version None)
Quarter: 2007Q2

REPORT INFORMATION
  Report Type: 
  Country: None (occurrence: None)
  Receive Date: 20070629
  Receipt Date: 20070620
  Transmission Date: 20071010
  Serious: Yes (Death)
  Sender: FDA-Public Use
  Company Number: 2007JP002710

PATIENT
  Age: 86 Year
  Sex: Female
  Weight: 57.5 kg

DRUGS (7)
  1. FUNGUARD(MICAFUNGIN INJECTION) [Suspect]
     Indication: FUNGAL INFECTION
     Dosage: 150 MG, D, IV DRIP
     Route: 041
     Dates: start: 20060607, end: 20060609
  2. NEUPOGEN [Suspect]
     Dosage: 300 UG, D
     Dates: start: 20060322
  3. NEORAL [Suspect]
     Dosage: 50 MG, D, ORAL
     Route: 048
     Dates: start: 20060322
  4. LYMPHOGLOBULINE(ANTITHYMOCYTE IMMUNOGLOBULIN) INJECTION [Suspect]
     Dosage: 800 MG
     Dates: start: 20060526, end: 20060530
  5. SAXIZON(HYDROCORTISONE SODIUM SUCCINATE) INJECTION [Suspect]
     Dosage: 100 MG, D
     Dates: start: 20060603
  6. DIFLUCAN [Concomitant]
  7. TIENAM (IMIPENEM, CILASTATIN SODIUM) [Concomitant]

REACTIONS (6)
  - BLOOD LACTATE DEHYDROGENASE INCREASED [None]
  - CARDIO-RESPIRATORY ARREST [None]
  - CONDITION AGGRAVATED [None]
  - HYPERTHERMIA [None]
  - INFECTION [None]
  - OBSTRUCTIVE AIRWAYS DISORDER [None]
